FAERS Safety Report 9448701 (Version 1)
Quarter: 2013Q3

REPORT INFORMATION
  Report Type: Spontaneous
  Country: US (occurrence: US)
  Receive Date: 20130808
  Receipt Date: 20130808
  Transmission Date: 20140515
  Serious: Yes (Death, Hospitalization, Other)
  Sender: FDA-Public Use
  Company Number: US-PFIZER INC-2013217139

PATIENT
  Age: 74 Year
  Sex: Female

DRUGS (5)
  1. DILANTIN [Suspect]
     Dosage: 1000 MG, UNK
     Route: 042
     Dates: start: 20060313, end: 20060314
  2. DILANTIN [Suspect]
     Dosage: 100 MG, UNK
     Route: 042
     Dates: start: 20060313, end: 20060314
  3. DILANTIN [Suspect]
     Dosage: 100 MG, 3X/DAY
     Route: 048
     Dates: start: 20060314, end: 20060319
  4. DILANTIN [Suspect]
     Dosage: 160MG ORALLY IN MORNING AND 200MG ORALLY AT BED TIME
     Route: 048
     Dates: start: 20060319, end: 20060321
  5. DILANTIN [Suspect]
     Dosage: 200 MG, 2X/DAY
     Route: 048
     Dates: start: 20060321, end: 200604

REACTIONS (2)
  - Stevens-Johnson syndrome [Fatal]
  - Toxic epidermal necrolysis [Fatal]
